FAERS Safety Report 4289766-1 (Version None)
Quarter: 2004Q1

REPORT INFORMATION
  Report Type: 
  Country: None (occurrence: None)
  Receive Date: 20040206
  Receipt Date: 20040126
  Transmission Date: 20041129
  Serious: Yes (Death, Hospitalization)
  Sender: FDA-Public Use
  Company Number: US064713

PATIENT
  Age: 62 Year
  Sex: Female

DRUGS (10)
  1. KINERET [Suspect]
     Indication: RHEUMATOID ARTHRITIS
     Dosage: 100 MG, 1 IN 1 DAYS, SC
     Route: 058
     Dates: start: 20020802
  2. PREDNISONE [Concomitant]
  3. DICLOFENAC SODIUM [Concomitant]
  4. METOPROLOL [Concomitant]
  5. PANTOLOC [Concomitant]
  6. CARBAMAZEPINE [Concomitant]
  7. ACETYLCALISYLIC ACID [Concomitant]
  8. RALOXIFEN HCL [Concomitant]
  9. OXYCONTIN [Concomitant]
  10. GLYCERYL TRINITRATE [Concomitant]

REACTIONS (9)
  - ABSCESS [None]
  - COLONIC PERFORATION POSTOPERATIVE [None]
  - DIABETES MELLITUS [None]
  - DIVERTICULAR PERFORATION [None]
  - HIP ARTHROPLASTY [None]
  - OMENTUM NEOPLASM [None]
  - OVARIAN CANCER [None]
  - PERITONITIS [None]
  - UTERINE CANCER [None]
